FAERS Safety Report 11445721 (Version 8)
Quarter: 2017Q1

REPORT INFORMATION
  Report Type: Report from Study
  Country: US (occurrence: US)
  Receive Date: 20150902
  Receipt Date: 20170309
  Transmission Date: 20170428
  Serious: Yes (Other)
  Sender: FDA-Public Use
  Company Number: PHHY2015US027367

PATIENT
  Age: 33 Year
  Sex: Female
  Weight: 88.9 kg

DRUGS (29)
  1. VICODIN [Concomitant]
     Active Substance: ACETAMINOPHEN\HYDROCODONE BITARTRATE
     Indication: MUSCLE SPASMS
  2. MUCINEX [Concomitant]
     Active Substance: GUAIFENESIN
     Indication: ANTIVIRAL PROPHYLAXIS
     Dosage: 600 MG, PRN
     Route: 048
     Dates: start: 2010, end: 201501
  3. NEURONTIN [Concomitant]
     Active Substance: GABAPENTIN
     Indication: MUSCLE SPASMS
  4. CRANBERRY. [Concomitant]
     Active Substance: CRANBERRY
     Indication: PRODUCT USED FOR UNKNOWN INDICATION
     Dosage: 1000 MG, PRN
     Route: 048
     Dates: start: 1999
  5. VICKS DAYQUIL [Concomitant]
     Active Substance: DEXTROMETHORPHAN HYDROBROMIDE\GUAIFENESIN
     Indication: ANTIVIRAL PROPHYLAXIS
     Dosage: UNK UNK, PRN
     Route: 048
     Dates: start: 2010, end: 20150325
  6. ZANTAC [Concomitant]
     Active Substance: RANITIDINE HYDROCHLORIDE
     Indication: DYSPEPSIA
     Dosage: UNK
     Route: 065
     Dates: start: 2009, end: 201501
  7. BOTOX [Concomitant]
     Active Substance: ONABOTULINUMTOXINA
     Indication: MIGRAINE
     Dosage: 155 U, UNK
     Route: 065
     Dates: start: 20150728, end: 20150728
  8. METFORMIN [Concomitant]
     Active Substance: METFORMIN HYDROCHLORIDE
     Indication: POLYCYSTIC OVARIES
     Dosage: 500 MG, BID
     Route: 065
     Dates: start: 201605, end: 201605
  9. GILENYA [Suspect]
     Active Substance: FINGOLIMOD HYDROCHLORIDE
     Indication: MULTIPLE SCLEROSIS
     Dosage: 0.5 MG, UNK
     Route: 048
     Dates: start: 20141230
  10. MAXALT [Concomitant]
     Active Substance: RIZATRIPTAN BENZOATE
     Indication: MIGRAINE
     Dosage: 10 MG, PRN
     Route: 048
     Dates: start: 2012, end: 20150817
  11. OMEGA-3 FATTY ACIDS [Concomitant]
     Active Substance: OMEGA-3 FATTY ACIDS
     Indication: PRODUCT USED FOR UNKNOWN INDICATION
     Dosage: 1000 MG, PRN
     Route: 065
     Dates: start: 1999, end: 20161128
  12. FIORICET [Concomitant]
     Active Substance: ACETAMINOPHEN\BUTALBITAL\CAFFEINE
     Indication: MIGRAINE
     Dosage: 50-325-40 MG, PRN
     Dates: start: 201509
  13. NEURONTIN [Concomitant]
     Active Substance: GABAPENTIN
     Indication: FATIGUE
     Dosage: 300 MG, PRN
     Route: 048
     Dates: start: 2012
  14. BACLOFEN. [Concomitant]
     Active Substance: BACLOFEN
     Indication: FATIGUE
     Dosage: 40 MG, PRN
     Route: 048
     Dates: start: 2012
  15. VITAMIN D3 [Concomitant]
     Active Substance: CHOLECALCIFEROL
     Indication: PRODUCT USED FOR UNKNOWN INDICATION
     Dosage: 5000 U, UNK
     Route: 065
     Dates: start: 1999, end: 20161128
  16. XANAX [Concomitant]
     Active Substance: ALPRAZOLAM
     Indication: INSOMNIA
     Dosage: 0.5 MG, PRN
     Route: 048
     Dates: start: 201409
  17. BACLOFEN. [Concomitant]
     Active Substance: BACLOFEN
     Indication: MUSCLE SPASMS
  18. VICODIN [Concomitant]
     Active Substance: ACETAMINOPHEN\HYDROCODONE BITARTRATE
     Indication: FATIGUE
     Dosage: 5-500 MG, PRN
     Route: 048
     Dates: start: 2012
  19. VITAMIN B12 [Concomitant]
     Active Substance: CYANOCOBALAMIN
     Indication: PRODUCT USED FOR UNKNOWN INDICATION
     Dosage: 500 UG, PRN
     Route: 048
     Dates: start: 2012, end: 20161128
  20. MOTRIN [Concomitant]
     Active Substance: IBUPROFEN
     Indication: HEADACHE
     Dosage: 200 MG, PRN
     Route: 048
     Dates: start: 1999
  21. BENADRYL [Concomitant]
     Active Substance: DIPHENHYDRAMINE HYDROCHLORIDE
     Indication: ANTIVIRAL PROPHYLAXIS
     Dosage: 25 MG, PRN
     Route: 048
     Dates: start: 2010, end: 20150325
  22. ZYRTEC [Concomitant]
     Active Substance: CETIRIZINE HYDROCHLORIDE
     Indication: SEASONAL ALLERGY
     Dosage: 10 MG, PRN
     Route: 048
     Dates: start: 2012, end: 20160906
  23. PHENTERMINE. [Concomitant]
     Active Substance: PHENTERMINE
     Indication: FATIGUE
     Dosage: Q AM
     Route: 065
     Dates: start: 2012, end: 20150817
  24. PEPTO-BISMOL [Concomitant]
     Active Substance: BISMUTH SUBSALICYLATE
     Indication: ABDOMINAL DISCOMFORT
     Dosage: 262 MG, PRN
     Route: 048
     Dates: start: 1999
  25. BUTAL [Concomitant]
     Indication: MIGRAINE
     Dosage: 50-325 MG, PRN
     Route: 065
     Dates: start: 20150627
  26. AMBIEN [Concomitant]
     Active Substance: ZOLPIDEM TARTRATE
     Indication: INSOMNIA
     Dosage: 5 MG, PRN
     Route: 065
     Dates: start: 20151216
  27. ADDERALL [Concomitant]
     Active Substance: AMPHETAMINE ASPARTATE\AMPHETAMINE SULFATE\DEXTROAMPHETAMINE SACCHARATE\DEXTROAMPHETAMINE SULFATE
     Indication: FATIGUE
     Dosage: 10 MG, AFTERNOON
     Route: 048
     Dates: start: 2013, end: 20150331
  28. FOLIC ACID. [Concomitant]
     Active Substance: FOLIC ACID
     Indication: PRODUCT USED FOR UNKNOWN INDICATION
     Dosage: 1 MG, QD
     Route: 048
     Dates: start: 2012, end: 20161128
  29. CO-ENZIME Q-10 [Concomitant]
     Indication: PRODUCT USED FOR UNKNOWN INDICATION
     Dosage: 30 MG, QD
     Route: 065
     Dates: start: 201605

REACTIONS (11)
  - Dizziness [Recovered/Resolved]
  - Epistaxis [Not Recovered/Not Resolved]
  - Gastric ulcer [Unknown]
  - Ear discomfort [Recovered/Resolved]
  - Bronchitis [Recovered/Resolved]
  - Weight increased [Not Recovered/Not Resolved]
  - Alanine aminotransferase increased [Unknown]
  - Nausea [Recovered/Resolved]
  - Sinusitis [Recovered/Resolved]
  - Vestibular disorder [Recovered/Resolved]
  - Myofascial pain syndrome [Not Recovered/Not Resolved]

NARRATIVE: CASE EVENT DATE: 20141231
